FAERS Safety Report 23410786 (Version 7)
Quarter: 2024Q1

REPORT INFORMATION
  Report Type: Report from Study
  Country: CA (occurrence: CA)
  Receive Date: 20240117
  Receipt Date: 20240329
  Transmission Date: 20240410
  Serious: Yes (Hospitalization, Other)
  Sender: FDA-Public Use
  Company Number: CA-JNJFOC-20240131828

PATIENT
  Age: 59 Year
  Sex: Female

DRUGS (2)
  1. SIMPONI [Suspect]
     Active Substance: GOLIMUMAB
     Indication: Rheumatoid arthritis
     Route: 058
     Dates: start: 20231214
  2. SIMPONI [Suspect]
     Active Substance: GOLIMUMAB
     Route: 058
     Dates: start: 20231214

REACTIONS (6)
  - Colon cancer recurrent [Recovering/Resolving]
  - Intestinal resection [Recovering/Resolving]
  - Ileostomy [Recovering/Resolving]
  - Asthenia [Not Recovered/Not Resolved]
  - Nasal congestion [Unknown]
  - Oropharyngeal pain [Unknown]

NARRATIVE: CASE EVENT DATE: 20240201
